FAERS Safety Report 23438494 (Version 2)
Quarter: 2024Q1

REPORT INFORMATION
  Report Type: Report from Study
  Country: TH (occurrence: None)
  Receive Date: 20240124
  Receipt Date: 20240130
  Transmission Date: 20240410
  Serious: Yes (Death)
  Sender: FDA-Public Use
  Company Number: 2024A015774

PATIENT
  Age: 699 Month
  Sex: Female

DRUGS (2)
  1. TAGRISSO [Suspect]
     Active Substance: OSIMERTINIB
     Indication: Non-small cell lung cancer metastatic
     Dosage: 80 MG OD
     Route: 048
     Dates: start: 20180718, end: 20231212
  2. TAGRISSO [Suspect]
     Active Substance: OSIMERTINIB
     Indication: Non-small cell lung cancer metastatic
     Route: 048
     Dates: end: 202401

REACTIONS (3)
  - Metastases to meninges [Fatal]
  - Metastases to spinal cord [Fatal]
  - Drug resistance [Unknown]

NARRATIVE: CASE EVENT DATE: 20240101
